FAERS Safety Report 5996595-7 (Version None)
Quarter: 2008Q4

REPORT INFORMATION
  Report Type: 
  Country: None (occurrence: None)
  Receive Date: 20081212
  Receipt Date: 20081204
  Transmission Date: 20090506
  Serious: Yes (Hospitalization)
  Sender: FDA-Public Use
  Company Number: US-GENENTECH-272888

PATIENT
  Age: 53 Year
  Sex: Female

DRUGS (4)
  1. RITUXAN [Suspect]
     Indication: ANTIPHOSPHOLIPID SYNDROME
     Dosage: 375 MG/M2, UNK
     Route: 042
     Dates: start: 20081201
  2. BENADRYL [Concomitant]
     Indication: PREMEDICATION
  3. TAGAMET [Concomitant]
     Indication: PREMEDICATION
  4. STEROIDS NOS [Concomitant]
     Indication: PREMEDICATION

REACTIONS (5)
  - BUNDLE BRANCH BLOCK RIGHT [None]
  - DYSARTHRIA [None]
  - HEMIPARESIS [None]
  - HYPOTENSION [None]
  - RESPIRATORY DISTRESS [None]
